FAERS Safety Report 24809940 (Version 1)
Quarter: 2025Q1

REPORT INFORMATION
  Report Type: Spontaneous
  Country: US (occurrence: None)
  Receive Date: 20250104
  Receipt Date: 20250104
  Transmission Date: 20250409
  Serious: Yes (Hospitalization)
  Sender: FDA-CTU
  Company Number: None

PATIENT
  Age: 29 Year
  Sex: Male
  Weight: 57.3 kg

DRUGS (4)
  1. CISPLATIN [Suspect]
     Active Substance: CISPLATIN
     Dates: end: 20221204
  2. FILGRASTIM [Suspect]
     Active Substance: FILGRASTIM
     Dates: end: 20221213
  3. IFOSFAMIDE [Suspect]
     Active Substance: IFOSFAMIDE
     Dates: end: 20221204
  4. TAXOL [Suspect]
     Active Substance: PACLITAXEL
     Dates: end: 20221203

REACTIONS (3)
  - Haematemesis [None]
  - Haemodynamic instability [None]
  - Thrombocytopenia [None]

NARRATIVE: CASE EVENT DATE: 20221217
